FAERS Safety Report 13222085 (Version 2)
Quarter: 2017Q1

REPORT INFORMATION
  Report Type: Spontaneous
  Country: US (occurrence: US)
  Receive Date: 20170211
  Receipt Date: 20170308
  Transmission Date: 20170428
  Serious: Yes (Other)
  Sender: FDA-Public Use
  Company Number: US-ACORDA-ACO_132363_2017

PATIENT
  Age: 42 Year
  Sex: Female

DRUGS (7)
  1. LEMTRADA [Concomitant]
     Active Substance: ALEMTUZUMAB
     Indication: NERVE INJURY
     Dosage: 800 MG
     Route: 048
  2. TYSABRI [Suspect]
     Active Substance: NATALIZUMAB
     Indication: MULTIPLE SCLEROSIS
     Dosage: 300 MG, INFUSED OVER 1 HOUR FOR 4 WEEKS
     Route: 042
     Dates: start: 20160815
  3. STEROID ANTIBACTERIALS [Concomitant]
     Active Substance: UNSPECIFIED INGREDIENT
     Indication: MULTIPLE SCLEROSIS
     Route: 065
  4. AMPYRA [Suspect]
     Active Substance: DALFAMPRIDINE
     Indication: GAIT DISTURBANCE
     Dosage: 10 MG, Q 12 HRS
     Route: 048
     Dates: start: 201611, end: 20161229
  5. AMPYRA [Suspect]
     Active Substance: DALFAMPRIDINE
     Indication: MULTIPLE SCLEROSIS
  6. LORAZEPAM. [Concomitant]
     Active Substance: LORAZEPAM
     Indication: PRODUCT USED FOR UNKNOWN INDICATION
     Route: 065
  7. VALIUM [Concomitant]
     Active Substance: DIAZEPAM
     Indication: PRODUCT USED FOR UNKNOWN INDICATION
     Route: 065

REACTIONS (32)
  - Foot operation [Unknown]
  - White blood cell count increased [Not Recovered/Not Resolved]
  - Confusional state [Not Recovered/Not Resolved]
  - Inappropriate schedule of drug administration [Unknown]
  - Eye disorder [Not Recovered/Not Resolved]
  - Hyperaesthesia [Not Recovered/Not Resolved]
  - Multiple sclerosis [Not Recovered/Not Resolved]
  - Fatigue [Not Recovered/Not Resolved]
  - Speech disorder [Unknown]
  - Condition aggravated [Not Recovered/Not Resolved]
  - Vomiting [Unknown]
  - Fatigue [Recovered/Resolved]
  - Tongue paralysis [Unknown]
  - Dysphagia [Unknown]
  - Dyspnoea [Unknown]
  - Anal incontinence [Unknown]
  - Contusion [Unknown]
  - Tremor [Not Recovered/Not Resolved]
  - Memory impairment [Not Recovered/Not Resolved]
  - Ear discomfort [Not Recovered/Not Resolved]
  - Hypersensitivity [Unknown]
  - Anaphylactic shock [Recovered/Resolved]
  - Dehydration [Recovered/Resolved]
  - Sensation of foreign body [Unknown]
  - Paraesthesia oral [Unknown]
  - Impaired driving ability [Not Recovered/Not Resolved]
  - Psychomotor hyperactivity [Recovered/Resolved]
  - Swelling face [Unknown]
  - Balance disorder [Not Recovered/Not Resolved]
  - Swollen tongue [Unknown]
  - Irritability [Not Recovered/Not Resolved]
  - Activities of daily living impaired [Not Recovered/Not Resolved]

NARRATIVE: CASE EVENT DATE: 2016
